FAERS Safety Report 8890680 (Version 1)
Quarter: 2012Q4

REPORT INFORMATION
  Report Type: 
  Country: ES (occurrence: ES)
  Receive Date: 20121106
  Receipt Date: 20121106
  Transmission Date: 20130627
  Serious: Yes (Hospitalization)
  Sender: FDA-Public Use
  Company Number: ES-GILEAD-2012-0064095

PATIENT
  Age: 57 Year
  Sex: Male

DRUGS (6)
  1. ATRIPLA [Suspect]
     Indication: ACQUIRED IMMUNODEFICIENCY SYNDROME
     Dosage: 1 DF, QD
     Route: 048
     Dates: start: 2011
  2. CLARITHROMYCIN [Suspect]
     Indication: RESPIRATORY TRACT INFECTION
     Route: 048
     Dates: start: 20120422, end: 20120426
  3. URBASON [Suspect]
     Indication: BRONCHOSPASM
     Route: 048
     Dates: start: 20120422, end: 20120426
  4. HYDROCORTISONE [Suspect]
     Indication: BRONCHOSPASM
     Route: 042
     Dates: start: 20120422, end: 20120422
  5. OSELTAMIVIR [Suspect]
     Indication: INFLUENZA
     Route: 048
     Dates: start: 20120422, end: 20120423
  6. CEFTRIAXONE [Suspect]
     Indication: RESPIRATORY TRACT INFECTION
     Route: 042
     Dates: start: 20120422, end: 20120426

REACTIONS (1)
  - Rhabdomyolysis [Recovered/Resolved]
